FAERS Safety Report 5805396-1 (Version None)
Quarter: 2008Q3

REPORT INFORMATION
  Report Type: 
  Country: None (occurrence: None)
  Receive Date: 20080710
  Receipt Date: 20080708
  Transmission Date: 20090109
  Serious: Yes (Other)
  Sender: FDA-Public Use
  Company Number: US-BRISTOL-MYERS SQUIBB COMPANY-14255251

PATIENT

DRUGS (1)
  1. IFEX/MESNEX KIT [Suspect]

REACTIONS (1)
  - HAEMOLYTIC ANAEMIA [None]
